FAERS Safety Report 10188346 (Version 3)
Quarter: 2014Q2

REPORT INFORMATION
  Report Type: Report from Study
  Country: US (occurrence: US)
  Receive Date: 20140522
  Receipt Date: 20140529
  Transmission Date: 20141212
  Serious: Yes (Life-Threatening, Hospitalization)
  Sender: FDA-Public Use
  Company Number: US-SA-2014SA034928

PATIENT
  Age: 71 Year
  Sex: Male
  Weight: 88.6 kg

DRUGS (26)
  1. AFLIBERCEPT [Suspect]
     Indication: COLORECTAL CANCER METASTATIC
     Route: 041
     Dates: start: 20131216, end: 20131216
  2. AFLIBERCEPT [Suspect]
     Indication: COLORECTAL CANCER METASTATIC
     Route: 041
     Dates: start: 20140305, end: 20140305
  3. SAR307746 [Suspect]
     Indication: COLORECTAL CANCER METASTATIC
     Route: 041
     Dates: start: 20140305, end: 20140305
  4. SAR307746 [Suspect]
     Indication: COLORECTAL CANCER METASTATIC
     Route: 041
     Dates: start: 20131216, end: 20131216
  5. SIMVASTATIN [Concomitant]
     Indication: BLOOD CHOLESTEROL
     Route: 048
     Dates: start: 2001
  6. NOVOLOG [Concomitant]
  7. HYDRALAZINE [Concomitant]
     Indication: HYPERTENSION
     Route: 048
     Dates: start: 20140116
  8. ZOFRAN [Concomitant]
  9. CALCIUM CITRATE/VITAMIN D NOS [Concomitant]
  10. ASPIRIN [Concomitant]
     Indication: THROMBOSIS PROPHYLAXIS
     Route: 048
     Dates: start: 2001
  11. NORCO [Concomitant]
  12. BYSTOLIC [Concomitant]
     Indication: HYPERTENSION
     Route: 048
     Dates: start: 20140106
  13. LEXAPRO [Concomitant]
     Indication: DEPRESSION
     Route: 048
  14. FLOMAX [Concomitant]
  15. GLIPIZIDE [Concomitant]
     Indication: DIABETES MELLITUS
     Route: 048
     Dates: start: 1999
  16. NORVASC [Concomitant]
     Indication: BLOOD PRESSURE
     Route: 048
     Dates: start: 20140116
  17. LANTUS SOLOSTAR [Concomitant]
     Indication: DIABETES MELLITUS
     Dosage: DOSE:200 UNIT(S)
     Route: 058
     Dates: start: 2012
  18. FERROUS FUMARATE/IRON [Concomitant]
  19. ANTIHYPERTENSIVES [Concomitant]
     Route: 048
     Dates: start: 20140106
  20. MULTIVITAMINS [Concomitant]
  21. MICROGENICS PROBIOTIC 8 [Concomitant]
     Indication: GASTROINTESTINAL DISORDER
     Route: 048
     Dates: start: 2010
  22. LOMOTIL [Concomitant]
     Indication: DIARRHOEA
     Route: 048
     Dates: start: 2012
  23. CALTRATE [Concomitant]
     Indication: MINERAL SUPPLEMENTATION
     Route: 048
  24. CENTRUM SILVER [Concomitant]
     Indication: VITAMIN SUPPLEMENTATION
     Route: 048
     Dates: start: 2010
  25. ACETAMINOPHEN W/HYDROCODONE [Concomitant]
     Indication: PAIN
     Route: 048
     Dates: start: 201312
  26. ONDANSETRON HYDROCHLORIDE [Concomitant]
     Indication: NAUSEA
     Route: 048
     Dates: start: 2012

REACTIONS (3)
  - Anastomotic leak [Recovered/Resolved]
  - Sepsis [Recovered/Resolved]
  - Cardiac failure congestive [Recovered/Resolved]
